FAERS Safety Report 4959557-4 (Version None)
Quarter: 2006Q1

REPORT INFORMATION
  Report Type: 
  Country: None (occurrence: None)
  Receive Date: 20060331
  Receipt Date: 20060330
  Transmission Date: 20060701
  Serious: Yes (Life-Threatening)
  Sender: FDA-Public Use
  Company Number: FR-GLAXOSMITHKLINE-B0418527A

PATIENT
  Age: 43 Year
  Sex: Female
  Weight: 59 kg

DRUGS (7)
  1. CLAMOXYL [Suspect]
     Indication: BACTERIAL INFECTION
     Route: 048
     Dates: start: 20040929, end: 20040929
  2. ZYBAN [Concomitant]
     Route: 048
     Dates: start: 20040929, end: 20040929
  3. CORVASAL [Concomitant]
     Indication: ANGINA PECTORIS
     Route: 048
  4. MOPRAL [Concomitant]
     Route: 048
  5. TAHOR [Concomitant]
     Indication: LIPID METABOLISM DISORDER
     Dosage: 40MG PER DAY
     Route: 048
  6. KARDEGIC [Concomitant]
     Indication: ANGINA PECTORIS
     Dosage: 160MG PER DAY
     Route: 048
  7. DILTIAZEM HCL [Concomitant]
     Dosage: 200MG PER DAY
     Route: 048

REACTIONS (4)
  - ANAPHYLACTIC SHOCK [None]
  - HYPOTENSION [None]
  - MALAISE [None]
  - URTICARIA GENERALISED [None]
